FAERS Safety Report 7939034-9 (Version None)
Quarter: 2011Q4

REPORT INFORMATION
  Report Type: 
  Country: None (occurrence: None)
  Receive Date: 20111124
  Receipt Date: 20111118
  Transmission Date: 20120403
  Serious: Yes (Other)
  Sender: FDA-Public Use
  Company Number: GB-PFIZER INC-2011284061

PATIENT
  Age: 66 Year
  Sex: Male
  Weight: 80 kg

DRUGS (6)
  1. OMEPRAZOLE [Concomitant]
  2. RITUXIMAB [Suspect]
     Indication: RHEUMATOID ARTHRITIS
     Dosage: 27 ML, UNK
     Route: 042
     Dates: start: 20111017, end: 20111017
  3. RAMIPRIL [Concomitant]
  4. METHYLPREDNISOLONE [Suspect]
     Indication: PREMEDICATION
     Dosage: 100 MG, UNK
     Route: 042
     Dates: start: 20111017, end: 20111017
  5. TRAMADOL [Concomitant]
  6. CHLORPHENIRAMINE MALEATE [Suspect]
     Indication: PREMEDICATION
     Dosage: 10 MG, UNK
     Route: 042
     Dates: start: 20111017, end: 20111017

REACTIONS (5)
  - HYPOAESTHESIA [None]
  - URTICARIA [None]
  - ABNORMAL BEHAVIOUR [None]
  - SWELLING FACE [None]
  - SPEECH DISORDER [None]
